FAERS Safety Report 14027076 (Version 1)
Quarter: 2017Q3

REPORT INFORMATION
  Report Type: Spontaneous
  Country: US (occurrence: US)
  Receive Date: 20170929
  Receipt Date: 20170929
  Transmission Date: 20171128
  Serious: No
  Sender: FDA-Public Use
  Company Number: US-NOVEN PHARMACEUTICALS, INC.-US2017000031

PATIENT

DRUGS (2)
  1. COMBIPATCH [Suspect]
     Active Substance: ESTRADIOL\NORETHINDRONE ACETATE
     Indication: PRODUCT USED FOR UNKNOWN INDICATION
     Dosage: USED TO CUT 50/140 MG PATCH, UNKNOWN
     Route: 062
  2. CLIMARA [Suspect]
     Active Substance: ESTRADIOL
     Indication: PRODUCT USED FOR UNKNOWN INDICATION
     Dosage: 0.045/.015 MG, UNKNOWN
     Route: 062

REACTIONS (6)
  - Off label use [Unknown]
  - Breast pain [Unknown]
  - Breast swelling [Unknown]
  - Wrong technique in product usage process [Recovered/Resolved]
  - Abdominal pain [Unknown]
  - Back pain [Unknown]
